FAERS Safety Report 11277194 (Version 1)
Quarter: 2015Q3

REPORT INFORMATION
  Report Type: Spontaneous
  Country: NO (occurrence: NO)
  Receive Date: 20150716
  Receipt Date: 20150716
  Transmission Date: 20151125
  Serious: Yes (Other)
  Sender: FDA-Public Use
  Company Number: NO-MYLANLABS-2014S1012374

PATIENT

DRUGS (6)
  1. DULOXETINE. [Interacting]
     Active Substance: DULOXETINE
     Dosage: 60 MG, DAILY
  2. CIPROFLOXACIN. [Interacting]
     Active Substance: CIPROFLOXACIN
     Indication: URINARY TRACT INFECTION
     Dosage: UNK
     Route: 064
  3. DULOXETINE. [Interacting]
     Active Substance: DULOXETINE
     Indication: PAIN IN EXTREMITY
     Dosage: 60 MG,QD
  4. TRAMADOL HYDROCHLORIDE. [Interacting]
     Active Substance: TRAMADOL HYDROCHLORIDE
     Dosage: 800 MG,QD
  5. TRAMADOL HYDROCHLORIDE. [Interacting]
     Active Substance: TRAMADOL HYDROCHLORIDE
     Dosage: 100 MG,TID
  6. TRAMADOL HYDROCHLORIDE. [Suspect]
     Active Substance: TRAMADOL HYDROCHLORIDE
     Indication: PAIN IN EXTREMITY
     Dosage: 600 MG,QD
     Route: 048

REACTIONS (14)
  - Confusional state [Unknown]
  - Blood pressure increased [Unknown]
  - Pyrexia [Unknown]
  - Clonus [Unknown]
  - Diarrhoea [Unknown]
  - Drug interaction [Unknown]
  - Hyperhidrosis [Unknown]
  - Anxiety [Unknown]
  - Hypertonia [Unknown]
  - Serotonin syndrome [Unknown]
  - Overdose [Unknown]
  - Tremor [Unknown]
  - Pain in extremity [Unknown]
  - Tachycardia [Unknown]
